FAERS Safety Report 8309708-9 (Version None)
Quarter: 2012Q2

REPORT INFORMATION
  Report Type: 
  Country: None (occurrence: None)
  Receive Date: 20120425
  Receipt Date: 20120419
  Transmission Date: 20120825
  Serious: Yes (Other)
  Sender: FDA-Public Use
  Company Number: GR-ABBOTT-12P-066-0927534-00

PATIENT
  Age: 55 Year
  Sex: Female

DRUGS (4)
  1. METHOTREXATE [Concomitant]
     Indication: ANKYLOSING SPONDYLITIS
  2. AZULFIDINE [Concomitant]
     Indication: ANKYLOSING SPONDYLITIS
     Dates: start: 20120401
  3. AMITRIPTYLINE HCL [Concomitant]
     Indication: FIBROMYALGIA
  4. HUMIRA [Suspect]
     Indication: ANKYLOSING SPONDYLITIS
     Dates: end: 20120301

REACTIONS (2)
  - HYPOAESTHESIA [None]
  - MULTIPLE SCLEROSIS [None]
